FAERS Safety Report 18095274 (Version 1)
Quarter: 2020Q3

REPORT INFORMATION
  Report Type: Spontaneous
  Country: FR (occurrence: FR)
  Receive Date: 20200730
  Receipt Date: 20200730
  Transmission Date: 20201103
  Serious: Yes (Hospitalization)
  Sender: FDA-Public Use
  Company Number: FR-JNJFOC-20200729919

PATIENT
  Age: 54 Year
  Sex: Female
  Weight: 56.5 kg

DRUGS (11)
  1. HALDOL DECANOAS [Suspect]
     Active Substance: HALOPERIDOL DECANOATE
     Indication: SCHIZOPHRENIA
     Route: 030
  2. TERCIAN                            /00759301/ [Suspect]
     Active Substance: CYAMEMAZINE
     Indication: SCHIZOPHRENIA
     Route: 065
  3. DEROXAT [Concomitant]
     Active Substance: PAROXETINE HYDROCHLORIDE
  4. INEXIUM                            /01479302/ [Concomitant]
     Active Substance: ESOMEPRAZOLE MAGNESIUM
  5. SERESTA [Concomitant]
     Active Substance: OXAZEPAM
  6. TIMOFEROL [Concomitant]
     Active Substance: ASCORBIC ACID\FERROUS SULFATE
  7. PERIACTINE [Concomitant]
     Active Substance: CYPROHEPTADINE HYDROCHLORIDE
  8. IMOVANE [Concomitant]
     Active Substance: ZOPICLONE
  9. DIFFU K [Concomitant]
     Active Substance: POTASSIUM CHLORIDE
  10. THERALENE [Suspect]
     Active Substance: TRIMEPRAZINE
     Indication: INSOMNIA
     Route: 048
  11. VITAMINES?B?LABAZ [Concomitant]

REACTIONS (1)
  - Pelvic venous thrombosis [Recovering/Resolving]

NARRATIVE: CASE EVENT DATE: 20200612
